FAERS Safety Report 14861376 (Version 1)
Quarter: 2018Q2

REPORT INFORMATION
  Report Type: Spontaneous
  Country: US (occurrence: US)
  Receive Date: 20180423
  Receipt Date: 20180423
  Transmission Date: 20180711
  Serious: Yes (Disabling)
  Sender: FDA-Public Use
  Company Number: None

PATIENT
  Age: 55 Year
  Sex: Female
  Weight: 93.15 kg

DRUGS (7)
  1. METHADONE [Concomitant]
     Active Substance: METHADONE HYDROCHLORIDE
  2. PROMETRIUM [Suspect]
     Active Substance: PROGESTERONE
     Indication: CHRONIC FATIGUE SYNDROME
     Dosage: ?          QUANTITY:3 CAPSULE(S);?
     Route: 048
  3. SYNTHROID [Concomitant]
     Active Substance: LEVOTHYROXINE SODIUM
  4. ARMOUR THYROID [Concomitant]
     Active Substance: THYROID, PORCINE
  5. VITAMIN D [Concomitant]
     Active Substance: CHOLECALCIFEROL
  6. PROMETRIUM [Suspect]
     Active Substance: PROGESTERONE
     Indication: MENOPAUSE
     Dosage: ?          QUANTITY:3 CAPSULE(S);?
     Route: 048
  7. GENERIC FOR PROMETRIUM [Suspect]
     Active Substance: PROGESTERONE

REACTIONS (9)
  - Night sweats [None]
  - Quality of life decreased [None]
  - Product formulation issue [None]
  - Hyperhidrosis [None]
  - Product substitution issue [None]
  - Dizziness [None]
  - Malaise [None]
  - Mood swings [None]
  - Frustration tolerance decreased [None]

NARRATIVE: CASE EVENT DATE: 20180409
